FAERS Safety Report 23037349 (Version 1)
Quarter: 2023Q4

REPORT INFORMATION
  Report Type: Spontaneous
  Country: US (occurrence: None)
  Receive Date: 20231004
  Receipt Date: 20231004
  Transmission Date: 20240110
  Serious: No
  Sender: FDA-Public Use
  Company Number: None

PATIENT
  Age: 68 Year
  Sex: Male
  Weight: 124.28 kg

DRUGS (1)
  1. FORTEO [Suspect]
     Active Substance: TERIPARATIDE
     Indication: Osteoporosis
     Dosage: INJECT 20MCG SUABCUTANEOUSLY DAILY INTO THE THIGHH OR ABDOMINAL WALL AS DIRECTED
     Route: 058
     Dates: start: 202310

REACTIONS (2)
  - Pneumonia [None]
  - Sepsis [None]
